FAERS Safety Report 9657210 (Version 2)
Quarter: 2014Q3

REPORT INFORMATION
  Report Type: Report from Study
  Country: US (occurrence: US)
  Receive Date: 20131030
  Receipt Date: 20140707
  Transmission Date: 20150326
  Serious: Yes (Hospitalization)
  Sender: FDA-Public Use
  Company Number: US-US-EMD SERONO, INC.-7245351

PATIENT
  Sex: Female

DRUGS (6)
  1. ZOLOFT [Concomitant]
     Active Substance: SERTRALINE HYDROCHLORIDE
     Indication: PRODUCT USED FOR UNKNOWN INDICATION
  2. DEPAKOTE [Concomitant]
     Active Substance: DIVALPROEX SODIUM
     Indication: BIPOLAR DISORDER
  3. REBIF [Suspect]
     Active Substance: INTERFERON BETA-1A
     Indication: MULTIPLE SCLEROSIS
     Route: 058
     Dates: end: 201205
  4. METHADONE [Concomitant]
     Active Substance: METHADONE HYDROCHLORIDE
     Indication: PRODUCT USED FOR UNKNOWN INDICATION
  5. REBIF [Suspect]
     Active Substance: INTERFERON BETA-1A
     Route: 058
  6. REBIF [Suspect]
     Active Substance: INTERFERON BETA-1A
     Route: 058
     Dates: start: 20130501, end: 201404

REACTIONS (14)
  - Shock [Unknown]
  - Weight decreased [Recovering/Resolving]
  - Multiple sclerosis [Unknown]
  - Coma [Recovering/Resolving]
  - Pancytopenia [Unknown]
  - Muscle tightness [Recovering/Resolving]
  - Connective tissue disorder [Recovering/Resolving]
  - Fall [Recovering/Resolving]
  - Laceration [Unknown]
  - Loss of consciousness [Recovering/Resolving]
  - Head injury [Recovering/Resolving]
  - Electroencephalogram abnormal [Unknown]
  - Injection site erythema [Not Recovered/Not Resolved]
  - Transfusion reaction [Unknown]

NARRATIVE: CASE EVENT DATE: 2013
